FAERS Safety Report 5881711-8 (Version None)
Quarter: 2008Q3

REPORT INFORMATION
  Report Type: 
  Country: None (occurrence: None)
  Receive Date: 20080912
  Receipt Date: 20080703
  Transmission Date: 20090109
  Serious: No
  Sender: FDA-Public Use
  Company Number: US-ABBOTT-08P-163-0460842-00

PATIENT
  Sex: Female
  Weight: 55.388 kg

DRUGS (13)
  1. HUMIRA [Suspect]
     Indication: RHEUMATOID ARTHRITIS
     Route: 058
     Dates: start: 20050101, end: 20060501
  2. HYPERICUM PERFORATUM [Concomitant]
     Indication: DEPRESSION
     Route: 048
     Dates: start: 20080401, end: 20080703
  3. METHOTREXATE [Concomitant]
     Indication: RHEUMATOID ARTHRITIS
     Route: 048
     Dates: start: 20080513
  4. PREDNISONE TAB [Concomitant]
     Indication: RHEUMATOID ARTHRITIS
     Dosage: 5 OR 10MG, DEPENDING ON DAY
     Route: 048
     Dates: start: 20080617
  5. MONTELUKAST SODIUM [Concomitant]
     Indication: ASTHMA
     Route: 048
  6. ALBUTEROL SPIROS [Concomitant]
     Indication: ASTHMA
     Dosage: 1-2 PUFFS AS NEEDED
     Route: 055
  7. HERBAL SLEEP AIDS [Concomitant]
     Indication: SLEEP DISORDER
     Route: 048
     Dates: start: 20080601
  8. MULTI-VITAMINS [Concomitant]
     Indication: VITAMIN SUPPLEMENTATION
     Route: 048
  9. VITAMIN-B-KOMPLEX STANDARD [Concomitant]
     Indication: VITAMIN SUPPLEMENTATION
     Route: 048
  10. CALCIUM-SANDOZ [Concomitant]
     Indication: MINERAL SUPPLEMENTATION
     Route: 048
  11. MILK THISTLE [Concomitant]
     Indication: MEDICAL DIET
     Route: 048
     Dates: start: 19980101
  12. ZYFLOAMEND [Concomitant]
     Indication: RHEUMATOID ARTHRITIS
     Route: 048
     Dates: start: 20071201, end: 20080703
  13. IBUPROFEN [Concomitant]
     Indication: RHEUMATOID ARTHRITIS
     Dosage: 2-200MG  TWICE DAILY AS NEEDED
     Route: 048

REACTIONS (1)
  - INSOMNIA [None]
